FAERS Safety Report 17615080 (Version 10)
Quarter: 2021Q2

REPORT INFORMATION
  Report Type: Spontaneous
  Country: US (occurrence: US)
  Receive Date: 20200402
  Receipt Date: 20210416
  Transmission Date: 20210716
  Serious: Yes (Other)
  Sender: FDA-Public Use
  Company Number: US-PFIZER INC-2020135871

PATIENT
  Age: 78 Year
  Sex: Female
  Weight: 68.48 kg

DRUGS (3)
  1. LYRICA [Suspect]
     Active Substance: PREGABALIN
     Indication: NEUROPATHY PERIPHERAL
     Dosage: 50 MG, 2X/DAY
     Route: 048
  2. AMLODIPINE [Concomitant]
     Active Substance: AMLODIPINE BESYLATE
     Indication: BLOOD PRESSURE MANAGEMENT
     Dosage: UNK (HALF A DAY)
  3. LYRICA [Suspect]
     Active Substance: PREGABALIN
     Indication: PAIN

REACTIONS (20)
  - Anxiety [Unknown]
  - Arthralgia [Unknown]
  - Cystitis interstitial [Unknown]
  - Fibromyalgia [Unknown]
  - Intraocular pressure increased [Unknown]
  - Dermatitis contact [Unknown]
  - Neuritis [Unknown]
  - Back pain [Unknown]
  - Herpes zoster [Unknown]
  - Irritable bowel syndrome [Unknown]
  - Vision blurred [Unknown]
  - Hypertension [Unknown]
  - Gait inability [Unknown]
  - Suicidal ideation [Unknown]
  - Malaise [Unknown]
  - Pain [Unknown]
  - Dust allergy [Unknown]
  - Intervertebral disc degeneration [Unknown]
  - Amnesia [Unknown]
  - Arthritis [Unknown]
